FAERS Safety Report 11512341 (Version 2)
Quarter: 2015Q4

REPORT INFORMATION
  Report Type: Report from Study
  Country: AU (occurrence: AU)
  Receive Date: 20150916
  Receipt Date: 20151019
  Transmission Date: 20160304
  Serious: Yes (Hospitalization)
  Sender: FDA-Public Use
  Company Number: AU-AMGEN-AUSCT2015077619

PATIENT
  Age: 69 Year
  Sex: Male
  Weight: 91 kg

DRUGS (11)
  1. PREFILLED AUTOINJECTOR/PEN [Suspect]
     Active Substance: DEVICE
     Indication: ARTERIOSCLEROSIS CORONARY ARTERY
     Dosage: UNK
     Route: 058
     Dates: start: 20140501
  2. HUMALOG MIX25 [Concomitant]
     Dosage: 12-16,UNK
     Route: 058
     Dates: start: 20140301
  3. ASPIRIN                            /00002701/ [Concomitant]
     Active Substance: ASPIRIN
     Dosage: 100 MG, UNK
     Route: 048
     Dates: start: 20130201
  4. METFORMIN [Concomitant]
     Active Substance: METFORMIN HYDROCHLORIDE
     Dosage: 1000 MG, UNK
     Route: 048
     Dates: start: 20130201
  5. CLOPIDOGREL [Concomitant]
     Active Substance: CLOPIDOGREL BISULFATE
     Dosage: 75 MG, UNK
     Route: 048
     Dates: start: 20130326
  6. GTN [Concomitant]
     Active Substance: NITROGLYCERIN
     Dosage: 300 MUG, UNK
     Route: 060
     Dates: start: 20130201
  7. AMG 145 [Suspect]
     Active Substance: EVOLOCUMAB
     Indication: ARTERIOSCLEROSIS CORONARY ARTERY
     Dosage: UNK
     Route: 058
     Dates: start: 20140501
  8. CANDESARTAN HCT [Concomitant]
     Active Substance: CANDESARTAN CILEXETIL\HYDROCHLOROTHIAZIDE
     Dosage: 1 UNK, UNK
     Route: 048
     Dates: start: 20130201
  9. DIAMICRON [Concomitant]
     Active Substance: GLICLAZIDE
     Dosage: 60 MG, UNK
     Route: 048
     Dates: start: 20130201
  10. PRAZOSIN [Concomitant]
     Active Substance: PRAZOSIN
     Dosage: 3 MG, UNK
     Route: 048
     Dates: start: 20130201
  11. ATENOLOL. [Concomitant]
     Active Substance: ATENOLOL
     Dosage: 50 MG, UNK
     Route: 048
     Dates: start: 20130201

REACTIONS (3)
  - Pulmonary embolism [Not Recovered/Not Resolved]
  - Skin ulcer [Not Recovered/Not Resolved]
  - Oedema peripheral [Not Recovered/Not Resolved]

NARRATIVE: CASE EVENT DATE: 20150622
